FAERS Safety Report 11260699 (Version 1)
Quarter: 2015Q3

REPORT INFORMATION
  Report Type: Spontaneous
  Country: US (occurrence: US)
  Receive Date: 20150710
  Receipt Date: 20150710
  Transmission Date: 20151125
  Serious: No
  Sender: FDA-Public Use
  Company Number: US-PURDUE-USA-2014-0119302

PATIENT
  Sex: Male

DRUGS (2)
  1. BUTRANS [Suspect]
     Active Substance: BUPRENORPHINE
     Indication: NECK SURGERY
  2. BUTRANS [Suspect]
     Active Substance: BUPRENORPHINE
     Indication: BACK DISORDER
     Dosage: 10 MCG/HR, WEEKLY
     Route: 062

REACTIONS (3)
  - Pruritus [Recovered/Resolved]
  - Drug administered at inappropriate site [Unknown]
  - Product adhesion issue [Unknown]

NARRATIVE: CASE EVENT DATE: 20141120
